FAERS Safety Report 22053521 (Version 7)
Quarter: 2023Q2

REPORT INFORMATION
  Report Type: Spontaneous
  Country: SK (occurrence: SK)
  Receive Date: 20230302
  Receipt Date: 20230622
  Transmission Date: 20230722
  Serious: Yes (Death, Hospitalization, Other)
  Sender: FDA-Public Use
  Company Number: SK-BRISTOL-MYERS SQUIBB COMPANY-2023-022315

PATIENT
  Age: 71 Year
  Sex: Male

DRUGS (23)
  1. POSACONAZOLE [Interacting]
     Active Substance: POSACONAZOLE
     Indication: Antibiotic prophylaxis
     Dosage: UNK
     Route: 065
  2. POSACONAZOLE [Interacting]
     Active Substance: POSACONAZOLE
     Indication: Acute myeloid leukaemia
  3. AZACITIDINE [Suspect]
     Active Substance: AZACITIDINE
     Indication: Acute myeloid leukaemia
     Dosage: 75 MILLIGRAM/SQ. METER, CYCLE 1
     Route: 065
  4. AZACITIDINE [Suspect]
     Active Substance: AZACITIDINE
     Dosage: 75 MILLIGRAM/SQ. METER, CYCLE 2
     Route: 065
  5. AZACITIDINE [Suspect]
     Active Substance: AZACITIDINE
     Dosage: 75 MILLIGRAM/SQ. METER, CYCLE 3
     Route: 065
  6. AZACITIDINE [Suspect]
     Active Substance: AZACITIDINE
     Dosage: 75 MILLIGRAM/SQ. METER, CYCLE 4
     Route: 065
  7. AZACITIDINE [Suspect]
     Active Substance: AZACITIDINE
     Dosage: 75 MILLIGRAM/SQ. METER, CYCLE 5
     Route: 065
  8. AZACITIDINE [Suspect]
     Active Substance: AZACITIDINE
     Dosage: 75 MILLIGRAM/SQ. METER, CYCLE 6
     Route: 065
  9. AZACITIDINE [Suspect]
     Active Substance: AZACITIDINE
     Dosage: 75 MILLIGRAM/SQ. METER, CYCLE 7
     Route: 065
  10. VENETOCLAX [Interacting]
     Active Substance: VENETOCLAX
     Indication: Acute myeloid leukaemia
     Dosage: 100 MILLIGRAM, QD, 1ST CYCLE
     Route: 065
  11. VENETOCLAX [Interacting]
     Active Substance: VENETOCLAX
     Dosage: 100 MILLIGRAM, QD, CYCLE 2
     Route: 048
  12. VENETOCLAX [Interacting]
     Active Substance: VENETOCLAX
     Dosage: 100 MILLIGRAM, QD, CYCLE 3
     Route: 048
  13. VENETOCLAX [Interacting]
     Active Substance: VENETOCLAX
     Dosage: 100 MILLIGRAM, QD, CYCLE 4
     Route: 048
  14. VENETOCLAX [Interacting]
     Active Substance: VENETOCLAX
     Dosage: 100 MILLIGRAM, QD, CYCLE 5
     Route: 048
  15. VENETOCLAX [Interacting]
     Active Substance: VENETOCLAX
     Dosage: 100 MILLIGRAM, QD, CYCLE 6
     Route: 048
  16. VENETOCLAX [Interacting]
     Active Substance: VENETOCLAX
     Dosage: 100 MILLIGRAM, QD, CYCLE 7
     Route: 048
  17. METRONIDAZOLE [Concomitant]
     Active Substance: METRONIDAZOLE
     Indication: Antibiotic prophylaxis
     Dosage: UNK
     Route: 065
  18. METRONIDAZOLE [Concomitant]
     Active Substance: METRONIDAZOLE
     Indication: Acute myeloid leukaemia
  19. BETAXOLOL [Concomitant]
     Active Substance: BETAXOLOL
     Indication: Product used for unknown indication
     Dosage: UNK
     Route: 048
  20. ATORVASTATIN [Concomitant]
     Active Substance: ATORVASTATIN
     Indication: Product used for unknown indication
     Dosage: UNK
     Route: 048
  21. ASPIRIN [Concomitant]
     Active Substance: ASPIRIN
     Indication: Product used for unknown indication
     Dosage: UNK
     Route: 048
  22. METFORMIN [Concomitant]
     Active Substance: METFORMIN HYDROCHLORIDE
     Indication: Product used for unknown indication
     Dosage: UNK
     Route: 048
  23. HYDROXYUREA [Concomitant]
     Active Substance: HYDROXYUREA
     Indication: Product used for unknown indication
     Dosage: 500 MILLIGRAM, QD, 500 MG, QD
     Route: 065

REACTIONS (3)
  - COVID-19 pneumonia [Fatal]
  - Acute myeloid leukaemia recurrent [Unknown]
  - Drug interaction [Recovered/Resolved]

NARRATIVE: CASE EVENT DATE: 20210201
